FAERS Safety Report 8936949 (Version 1)
Quarter: 2012Q4

REPORT INFORMATION
  Report Type: 
  Country: CA (occurrence: CA)
  Receive Date: 20121130
  Receipt Date: 20121130
  Transmission Date: 20130627
  Serious: Yes (Other)
  Sender: FDA-Public Use
  Company Number: CA-ROCHE-1160976

PATIENT

DRUGS (1)
  1. XOLAIR [Suspect]
     Indication: PRODUCT USED FOR UNKNOWN INDICATION
     Route: 065
     Dates: start: 20081006

REACTIONS (6)
  - Asthma [Unknown]
  - Productive cough [Unknown]
  - Sputum discoloured [Unknown]
  - Obstructive airways disorder [Unknown]
  - Muscle spasms [Unknown]
  - Spirometry abnormal [Unknown]
